FAERS Safety Report 6072336-2 (Version None)
Quarter: 2009Q1

REPORT INFORMATION
  Report Type: 
  Country: None (occurrence: None)
  Receive Date: 20090210
  Receipt Date: 20090130
  Transmission Date: 20090719
  Serious: Yes (Hospitalization)
  Sender: FDA-Public Use
  Company Number: PHHY2009JP03951

PATIENT
  Sex: Female

DRUGS (3)
  1. COMTAN [Suspect]
     Indication: DRUG EFFECT DECREASED
     Dosage: 300MG
     Route: 048
  2. COMTAN [Suspect]
     Dosage: 150MG
     Route: 048
  3. MADOPAR [Concomitant]
     Dosage: 300MG DAILY
     Route: 048

REACTIONS (4)
  - CONCOMITANT DISEASE PROGRESSION [None]
  - DEMENTIA [None]
  - DIZZINESS [None]
  - FALL [None]
